FAERS Safety Report 4607877-5 (Version None)
Quarter: 2005Q1

REPORT INFORMATION
  Report Type: 
  Country: None (occurrence: None)
  Receive Date: 20050310
  Receipt Date: 20050303
  Transmission Date: 20050727
  Serious: Yes (Hospitalization)
  Sender: FDA-Public Use
  Company Number: 2005-00785

PATIENT
  Age: 76 Year
  Sex: Male

DRUGS (4)
  1. COLCHICINE (WATSON LABORATORIES)(COLCHICINE) TABLET,0.6MG [Suspect]
     Indication: FAMILIAL MEDITERRANEAN FEVER
     Dosage: 1.5 MG, DAILY, ORAL
     Route: 048
  2. CLARITHROMYCIN [Suspect]
     Indication: HELICOBACTER GASTRITIS
     Dosage: 1 G, DAILY, ORAL
     Route: 048
  3. AMOXICILLIN [Concomitant]
  4. OMEPRAZOLE [Concomitant]

REACTIONS (2)
  - DRUG INTERACTION POTENTIATION [None]
  - DRUG TOXICITY [None]
